FAERS Safety Report 17840406 (Version 1)
Quarter: 2020Q2

REPORT INFORMATION
  Report Type: Spontaneous
  Country: US (occurrence: US)
  Receive Date: 20200529
  Receipt Date: 20200529
  Transmission Date: 20200714
  Serious: No
  Sender: FDA-Public Use
  Company Number: US-GLAXOSMITHKLINE-US2020AMR088037

PATIENT
  Sex: Female

DRUGS (2)
  1. COREG [Suspect]
     Active Substance: CARVEDILOL
     Dosage: 6.25 MG, BID
     Route: 065
     Dates: start: 20200520
  2. COREG [Suspect]
     Active Substance: CARVEDILOL
     Indication: BLOOD PRESSURE INCREASED
     Dosage: 3.125 MG, BID
     Route: 065

REACTIONS (5)
  - Stress [Unknown]
  - Insomnia [Unknown]
  - Blood pressure increased [Unknown]
  - Uterine disorder [Unknown]
  - Palpitations [Unknown]
